FAERS Safety Report 11567623 (Version 1)
Quarter: 2015Q3

REPORT INFORMATION
  Report Type: Spontaneous
  Country: US (occurrence: US)
  Receive Date: 20150916
  Receipt Date: 20150916
  Transmission Date: 20151125
  Serious: No
  Sender: FDA-Public Use
  Company Number: US-ELI_LILLY_AND_COMPANY-US200907006204

PATIENT
  Sex: Female

DRUGS (2)
  1. FORTEO [Suspect]
     Active Substance: TERIPARATIDE
  2. ANTIINFLAMMATORY/ANTIRHEUMATIC NON-STEROIDS [Concomitant]

REACTIONS (7)
  - Dizziness [Recovered/Resolved]
  - Pain in extremity [Unknown]
  - Swelling [Unknown]
  - Abasia [Unknown]
  - Insomnia [Unknown]
  - Pain [Unknown]
  - Arthralgia [Unknown]
